FAERS Safety Report 15669526 (Version 3)
Quarter: 2020Q1

REPORT INFORMATION
  Report Type: Report from Study
  Country: JP (occurrence: JP)
  Receive Date: 20181129
  Receipt Date: 20200306
  Transmission Date: 20200409
  Serious: Yes (Hospitalization, Other)
  Sender: FDA-Public Use
  Company Number: JP-ACTELION-A-CH2018-182077

PATIENT
  Age: 82 Year
  Sex: Female
  Weight: 41.6 kg

DRUGS (16)
  1. OPSUMIT [Suspect]
     Active Substance: MACITENTAN
     Dosage: 10 MG, QD
     Route: 048
     Dates: start: 20190411, end: 20190704
  2. EPADEL [Concomitant]
     Active Substance: ICOSAPENT
  3. MICARDIS [Concomitant]
     Active Substance: TELMISARTAN
  4. CILNIDIPINE [Concomitant]
     Active Substance: CILNIDIPINE
  5. REVATIO [Concomitant]
     Active Substance: SILDENAFIL CITRATE
  6. BERAPROST SODIUM [Concomitant]
     Active Substance: BERAPROST SODIUM
  7. BROTIZOLAM [Concomitant]
     Active Substance: BROTIZOLAM
  8. LANSOPRAZOLE. [Concomitant]
     Active Substance: LANSOPRAZOLE
  9. OPSUMIT [Suspect]
     Active Substance: MACITENTAN
     Indication: PULMONARY ARTERIAL HYPERTENSION
     Dosage: 10 MG, QD
     Route: 048
     Dates: start: 20170615, end: 20190124
  10. TEPRENONE [Concomitant]
     Active Substance: TEPRENONE
  11. NIFEDIPINE. [Concomitant]
     Active Substance: NIFEDIPINE
  12. CELECOX [Concomitant]
     Active Substance: CELECOXIB
  13. CARVEDILOL. [Concomitant]
     Active Substance: CARVEDILOL
  14. AMITIZA [Concomitant]
     Active Substance: LUBIPROSTONE
  15. SENNOSIDE [Concomitant]
     Active Substance: SENNOSIDES
  16. NEXIUM [Concomitant]
     Active Substance: ESOMEPRAZOLE MAGNESIUM

REACTIONS (8)
  - Transfusion [Recovered/Resolved]
  - Platelet count decreased [Recovered/Resolved]
  - Influenza [Recovering/Resolving]
  - Pneumonia staphylococcal [Recovering/Resolving]
  - White blood cell count decreased [Recovered/Resolved]
  - Haemoglobin decreased [Unknown]
  - Anaemia [Recovered/Resolved]
  - Bronchitis [Recovering/Resolving]

NARRATIVE: CASE EVENT DATE: 20170817
